FAERS Safety Report 8020482-6 (Version None)
Quarter: 2012Q1

REPORT INFORMATION
  Report Type: 
  Country: None (occurrence: None)
  Receive Date: 20120103
  Receipt Date: 20120103
  Transmission Date: 20120608
  Serious: Yes (Hospitalization)
  Sender: FDA-Public Use
  Company Number: US-B.I. PHARMACEUTICALS,INC./RIDGEFIELD-2011-BP-27257BP

PATIENT
  Sex: Female
  Weight: 83.2 kg

DRUGS (7)
  1. PRADAXA [Suspect]
     Indication: ATRIAL FIBRILLATION
     Dates: start: 20110701, end: 20111121
  2. NEXIUM [Concomitant]
     Indication: GASTROOESOPHAGEAL REFLUX DISEASE
     Dosage: 4 MG
     Dates: start: 20070410
  3. SIMVASTATIN [Concomitant]
     Indication: HYPERLIPIDAEMIA
     Dosage: 4 MG
     Dates: start: 20070410
  4. FUROSEMIDE [Concomitant]
     Indication: OEDEMA
     Dosage: 4 MG
     Dates: start: 20070410
  5. SINGULAIR [Concomitant]
     Indication: ASTHMA
     Dosage: 10 MG
     Dates: start: 20070410
  6. VERAPAMIL [Concomitant]
     Indication: HYPERTENSION
     Dosage: 180 MG
     Dates: start: 20070410
  7. MICARDIS [Concomitant]
     Indication: HYPERTENSION
     Dosage: 80 MG
     Dates: start: 20070410

REACTIONS (4)
  - PRURITUS [None]
  - URTICARIA [None]
  - RASH GENERALISED [None]
  - OEDEMA [None]
